FAERS Safety Report 5378347-4 (Version None)
Quarter: 2007Q3

REPORT INFORMATION
  Report Type: 
  Country: None (occurrence: None)
  Receive Date: 20070702
  Receipt Date: 20070702
  Transmission Date: 20080115
  Serious: No
  Sender: FDA-Public Use
  Company Number: None

PATIENT
  Age: 42 Year
  Sex: Female
  Weight: 65.7716 kg

DRUGS (2)
  1. ZICAM COLD REMEDY 0.50 FL OZ MATRIXX INITIATIVES INC. [Suspect]
     Indication: NASOPHARYNGITIS
     Dosage: 1 SPRAY IN TO EACH NOSTRIL EVERY 4 HOURS
     Dates: start: 20070401, end: 20070404
  2. ZICAM COLD REMEDY 0.50 FL OZ MATRIXX INITIATIVES INC. [Suspect]
     Indication: SINUSITIS
     Dosage: 1 SPRAY IN TO EACH NOSTRIL EVERY 4 HOURS
     Dates: start: 20070401, end: 20070404

REACTIONS (3)
  - AGEUSIA [None]
  - ANOSMIA [None]
  - BURNING SENSATION [None]
